FAERS Safety Report 6635082-X (Version None)
Quarter: 2010Q1

REPORT INFORMATION
  Report Type: 
  Country: None (occurrence: None)
  Receive Date: 20100315
  Receipt Date: 20100302
  Transmission Date: 20100710
  Serious: Yes (Hospitalization)
  Sender: FDA-Public Use
  Company Number: PHEH2010US02871

PATIENT
  Sex: Female

DRUGS (1)
  1. GLEEVEC [Suspect]
     Dosage: 400 MG, QD
     Route: 048
     Dates: start: 20090911

REACTIONS (2)
  - MENTAL DISORDER [None]
  - TREATMENT NONCOMPLIANCE [None]
